FAERS Safety Report 25926994 (Version 5)
Quarter: 2025Q4

REPORT INFORMATION
  Report Type: Spontaneous
  Country: BR (occurrence: BR)
  Receive Date: 20251015
  Receipt Date: 20251205
  Transmission Date: 20260117
  Serious: Yes (Other)
  Sender: BIOMARIN
  Company Number: BR-BIOMARINAP-BR-2025-169392

PATIENT
  Age: 26 Year
  Sex: Male

DRUGS (1)
  1. NAGLAZYME [Suspect]
     Active Substance: GALSULFASE
     Indication: Mucopolysaccharidosis VI

REACTIONS (6)
  - Corneal disorder [Not Recovered/Not Resolved]
  - Visual impairment [Not Recovered/Not Resolved]
  - Bone disorder [Not Recovered/Not Resolved]
  - Arthropathy [Unknown]
  - Gait disturbance [Not Recovered/Not Resolved]
  - Hypoacusis [Unknown]
